FAERS Safety Report 4432959-0 (Version None)
Quarter: 2004Q3

REPORT INFORMATION
  Report Type: 
  Country: None (occurrence: None)
  Receive Date: 20040726
  Receipt Date: 20040507
  Transmission Date: 20050211
  Serious: No
  Sender: FDA-Public Use
  Company Number: USA031254246

PATIENT
  Age: 81 Year
  Sex: Female

DRUGS (12)
  1. FORTEO [Suspect]
     Indication: OSTEOPOROSIS
     Dosage: 20 UG DAY
     Dates: start: 20031203
  2. ARICEPT [Concomitant]
  3. LIPITOR [Concomitant]
  4. SYNTHROID [Concomitant]
  5. NEXIUM [Concomitant]
  6. POTASSIUM [Concomitant]
  7. QUININE [Concomitant]
  8. LASIX [Concomitant]
  9. CALCIUM [Concomitant]
  10. VITAMIN E [Concomitant]
  11. VITAMIN C [Concomitant]
  12. OXYCODONE HCL [Concomitant]

REACTIONS (5)
  - DECREASED APPETITE [None]
  - DIZZINESS [None]
  - DYSPEPSIA [None]
  - OEDEMA PERIPHERAL [None]
  - PRURITUS GENERALISED [None]
